FAERS Safety Report 21175302 (Version 3)
Quarter: 2022Q4

REPORT INFORMATION
  Report Type: Report from Study
  Country: CA (occurrence: CA)
  Receive Date: 20220805
  Receipt Date: 20221008
  Transmission Date: 20230113
  Serious: Yes (Other)
  Sender: FDA-Public Use
  Company Number: CA-ABBVIE-22K-028-4492852-00

PATIENT
  Sex: Female
  Weight: 94 kg

DRUGS (2)
  1. SKYRIZI [Suspect]
     Active Substance: RISANKIZUMAB-RZAA
     Indication: Psoriasis
     Route: 058
     Dates: start: 20210320
  2. TYLENOL [Concomitant]
     Active Substance: ACETAMINOPHEN
     Indication: Abdominal pain lower
     Route: 048
     Dates: start: 20220629, end: 20220701

REACTIONS (3)
  - Appendicitis [Unknown]
  - Colectomy [Unknown]
  - Scar [Unknown]
